FAERS Safety Report 5207391-2 (Version None)
Quarter: 2007Q1

REPORT INFORMATION
  Report Type: 
  Country: None (occurrence: None)
  Receive Date: 20070112
  Receipt Date: 20070104
  Transmission Date: 20070707
  Serious: Yes (Hospitalization, Disabling)
  Sender: FDA-Public Use
  Company Number: US-ROCHE-407458

PATIENT
  Age: 39 Year
  Sex: Male
  Weight: 72.6 kg

DRUGS (8)
  1. ACCUTANE [Suspect]
     Indication: ACNE
     Route: 048
     Dates: start: 19881003
  2. ACCUTANE [Suspect]
     Route: 048
     Dates: start: 19881108, end: 19881215
  3. ACCUTANE [Suspect]
     Dosage: REGIMEN REPORTED AS 40 MG ALTERNATING WITH 80 MG.
     Route: 048
     Dates: start: 19921223
  4. ACCUTANE [Suspect]
     Route: 048
     Dates: start: 19930112
  5. ACCUTANE [Suspect]
     Route: 048
     Dates: start: 19930205
  6. ACCUTANE [Suspect]
     Dosage: REGIMEN 40 MG ALTERNATING WITH 80 MG.
     Route: 048
     Dates: start: 19930412
  7. ACCUTANE [Suspect]
     Route: 048
     Dates: start: 19930510
  8. ACCUTANE [Suspect]
     Route: 048
     Dates: start: 19931129, end: 19940715

REACTIONS (29)
  - ABNORMAL BEHAVIOUR [None]
  - AFFECT LABILITY [None]
  - AGGRESSION [None]
  - AGITATION [None]
  - ANGER [None]
  - ANXIETY [None]
  - ARTHRALGIA [None]
  - BLOOD TRIGLYCERIDES INCREASED [None]
  - DEAFNESS UNILATERAL [None]
  - DELIRIUM [None]
  - DELUSION [None]
  - ECZEMA ASTEATOTIC [None]
  - HYPERTENSION [None]
  - IMPULSE-CONTROL DISORDER [None]
  - MAJOR DEPRESSION [None]
  - MENTAL DISORDER [None]
  - MYALGIA [None]
  - OBSESSIVE-COMPULSIVE PERSONALITY DISORDER [None]
  - PALPITATIONS [None]
  - PANIC DISORDER [None]
  - PARANOIA [None]
  - PENIS DISORDER [None]
  - PERSONALITY DISORDER [None]
  - PNEUMONITIS [None]
  - PSYCHOTIC DISORDER [None]
  - SEBORRHOEIC DERMATITIS [None]
  - SUICIDAL IDEATION [None]
  - SUICIDE ATTEMPT [None]
  - VENTRICULAR EXTRASYSTOLES [None]
